FAERS Safety Report 4707095-6 (Version None)
Quarter: 2005Q3

REPORT INFORMATION
  Report Type: 
  Country: None (occurrence: None)
  Receive Date: 20050701
  Receipt Date: 20050621
  Transmission Date: 20060218
  Serious: Yes (Death)
  Sender: FDA-Public Use
  Company Number: DEU-2005-0001498

PATIENT
  Age: 38 Year
  Sex: Male

DRUGS (1)
  1. SUBSTITOL RETARD KAPSELN (MORPHINE SULFATE)CR CAPSULE DAILY [Suspect]
     Indication: OFF LABEL USE

REACTIONS (3)
  - ASPIRATION [None]
  - INJURY ASPHYXIATION [None]
  - VOMITING [None]
